FAERS Safety Report 16318252 (Version 1)
Quarter: 2019Q2

REPORT INFORMATION
  Report Type: Spontaneous
  Country: US (occurrence: US)
  Receive Date: 20190410
  Receipt Date: 20190410
  Transmission Date: 20190711
  Serious: Yes (Hospitalization)
  Sender: FDA-Public Use
  Company Number: None

PATIENT
  Age: 41 Year
  Sex: Male

DRUGS (15)
  1. ATOVAQUONE. [Concomitant]
     Active Substance: ATOVAQUONE
  2. BUMETANIDE. [Concomitant]
     Active Substance: BUMETANIDE
  3. NICOTINE. [Concomitant]
     Active Substance: NICOTINE
  4. XIFAXAN [Concomitant]
     Active Substance: RIFAXIMIN
  5. TIVICAY [Suspect]
     Active Substance: DOLUTEGRAVIR SODIUM
     Indication: IMAGING PROCEDURE
     Route: 048
     Dates: start: 20161013
  6. CARVEDILOL. [Concomitant]
     Active Substance: CARVEDILOL
  7. IBUPROFEN. [Concomitant]
     Active Substance: IBUPROFEN
  8. ENTECAVIR. [Concomitant]
     Active Substance: ENTECAVIR
  9. SPIRONOLACTONE. [Concomitant]
     Active Substance: SPIRONOLACTONE
  10. CEFDINIR. [Concomitant]
     Active Substance: CEFDINIR
  11. CIPROFLOXACIN. [Concomitant]
     Active Substance: CIPROFLOXACIN
  12. DESCOVY [Concomitant]
     Active Substance: EMTRICITABINE\TENOFOVIR ALAFENAMIDE FUMARATE
  13. PROMETHAZINE [Concomitant]
     Active Substance: PROMETHAZINE\PROMETHAZINE HYDROCHLORIDE
  14. HYDROCORTISONE. [Concomitant]
     Active Substance: HYDROCORTISONE
  15. AUGMENTIN [Concomitant]
     Active Substance: AMOXICILLIN\CLAVULANATE POTASSIUM

REACTIONS (2)
  - Drug ineffective [None]
  - Perineal infection [None]
